FAERS Safety Report 15248991 (Version 2)
Quarter: 2018Q3

REPORT INFORMATION
  Report Type: Spontaneous
  Country: US (occurrence: US)
  Receive Date: 20180807
  Receipt Date: 20180810
  Transmission Date: 20181010
  Serious: No
  Sender: FDA-Public Use
  Company Number: US-PFIZER INC-2018313041

PATIENT
  Age: 60 Year
  Sex: Female

DRUGS (1)
  1. PREMPRO [Suspect]
     Active Substance: ESTROGENS, CONJUGATED\MEDROXYPROGESTERONE ACETATE
     Dosage: 0.3/1.5 (CONJUGATED ESTROGENS: 0.3 MG/MEDROXYPROGESTERONE ACETATE: 1.5 MG)

REACTIONS (2)
  - Pain [Unknown]
  - Breast pain [Unknown]

NARRATIVE: CASE EVENT DATE: 20180729
